FAERS Safety Report 20490877 (Version 1)
Quarter: 2022Q1

REPORT INFORMATION
  Report Type: Spontaneous
  Country: None (occurrence: CA)
  Receive Date: 20220218
  Receipt Date: 20220218
  Transmission Date: 20220423
  Serious: Yes (Life-Threatening, Hospitalization, Other)
  Sender: FDA-Public Use
  Company Number: CA-B.Braun Medical Inc.-2126010

PATIENT
  Age: 51 Year
  Sex: Male

DRUGS (24)
  1. DEXTROSE\SODIUM CHLORIDE [Suspect]
     Active Substance: DEXTROSE\SODIUM CHLORIDE
  2. ACTIVATED CHARCOAL [Suspect]
     Active Substance: ACTIVATED CHARCOAL
  3. VERAPAMIL HYDROCHLORIDE [Suspect]
     Active Substance: VERAPAMIL HYDROCHLORIDE
  4. ATROPINE [Suspect]
     Active Substance: ATROPINE
  5. CALCIUM CARBONATE [Suspect]
     Active Substance: CALCIUM CARBONATE
  6. DIPHENHYDRAMINE HYDROCHLORIDE [Suspect]
     Active Substance: DIPHENHYDRAMINE HYDROCHLORIDE
  7. GLUCAGON [Suspect]
     Active Substance: GLUCAGON
  8. GLUTAMIC ACID [Suspect]
     Active Substance: GLUTAMIC ACID
  9. GLYCINE [Suspect]
     Active Substance: GLYCINE
  10. HISTIDINE [Suspect]
     Active Substance: HISTIDINE
  11. UNSPECIFIED INGREDIENT [Suspect]
     Active Substance: UNSPECIFIED INGREDIENT
  12. ASPARTIC ACID [Suspect]
     Active Substance: ASPARTIC ACID
  13. LYSINE [Suspect]
     Active Substance: LYSINE
  14. MAGNESIUM CHLORIDE [Suspect]
     Active Substance: MAGNESIUM CHLORIDE
  15. METHYLENE BLUE [Suspect]
     Active Substance: METHYLENE BLUE
  16. NOREPINEPHRINE [Suspect]
     Active Substance: NOREPINEPHRINE
  17. PHENYLALANINE [Suspect]
     Active Substance: PHENYLALANINE
  18. POTASSIUM CHLORIDE [Suspect]
     Active Substance: POTASSIUM CHLORIDE
  19. PROLINE [Suspect]
     Active Substance: PROLINE
  20. THREONINE [Suspect]
     Active Substance: THREONINE
  21. VALINE [Suspect]
     Active Substance: VALINE
  22. VASOPRESSIN [Suspect]
     Active Substance: VASOPRESSIN
  23. VERAPAMIL HYDROCHLORIDE [Suspect]
     Active Substance: VERAPAMIL HYDROCHLORIDE
  24. XYLOCAINE WITH EPINEPHRINE [Suspect]
     Active Substance: EPINEPHRINE BITARTRATE\LIDOCAINE HYDROCHLORIDE

REACTIONS (14)
  - Bradycardia [Recovered/Resolved]
  - Cardiac arrest [Recovered/Resolved]
  - Cardiogenic shock [Recovered/Resolved]
  - Coma scale abnormal [Recovered/Resolved]
  - Compartment syndrome [Recovered/Resolved]
  - Condition aggravated [Recovered/Resolved]
  - Hyperkalaemia [Recovered/Resolved]
  - Hypotension [Recovered/Resolved]
  - Ileus [Recovered/Resolved]
  - Lactic acidosis [Recovered/Resolved]
  - Overdose [Recovered/Resolved]
  - Pulse absent [Recovered/Resolved]
  - Rhabdomyolysis [Recovered/Resolved]
  - Vasoplegia syndrome [Recovered/Resolved]
